FAERS Safety Report 21710678 (Version 3)
Quarter: 2023Q1

REPORT INFORMATION
  Report Type: Report from Study
  Country: FR (occurrence: None)
  Receive Date: 20221212
  Receipt Date: 20230206
  Transmission Date: 20230418
  Serious: Yes (Life-Threatening, Hospitalization)
  Sender: FDA-Public Use
  Company Number: FR-ROCHE-3236482

PATIENT
  Age: 54 Year
  Sex: Male
  Weight: 67.2 kg

DRUGS (13)
  1. TIRAGOLUMAB [Suspect]
     Active Substance: TIRAGOLUMAB
     Indication: Squamous cell carcinoma of the hypopharynx
     Dosage: ON 26/OCT/2022 AND 16/NOV/2022, RECEIVED MOST RECENT DOSE OF TIRAGOLUMAB AT 1200 MG BEFORE AE AND SA
     Route: 042
     Dates: start: 20210727
  2. ATEZOLIZUMAB [Suspect]
     Active Substance: ATEZOLIZUMAB
     Indication: Squamous cell carcinoma of the hypopharynx
     Dosage: ON 26/OCT/2022 AND 16/NOV/2022, RECEIVED MOST RECENT DOSE OF ATEZOLIZUMAB BEFORE EVENT ONSET.
     Route: 041
     Dates: start: 20210727
  3. ACETAMINOPHEN [Concomitant]
     Active Substance: ACETAMINOPHEN
     Route: 048
  4. NASONEX [Concomitant]
     Active Substance: MOMETASONE FUROATE
     Dosage: 1 SPRAY
     Route: 055
     Dates: start: 20220518
  5. ACUPAN [Concomitant]
     Active Substance: NEFOPAM HYDROCHLORIDE
     Dosage: 1 AMPULE
     Route: 030
     Dates: start: 20220329
  6. EMLA [Concomitant]
     Active Substance: LIDOCAINE\PRILOCAINE
     Dosage: 1 U
     Route: 062
     Dates: start: 20220329
  7. SODIUM BICARBONATE [Concomitant]
     Active Substance: SODIUM BICARBONATE
     Dosage: 1 U
     Route: 048
     Dates: start: 20220329
  8. TRAMADOL [Concomitant]
     Active Substance: TRAMADOL
     Route: 048
     Dates: start: 20220329
  9. AMOXICILLIN [Concomitant]
     Active Substance: AMOXICILLIN
     Indication: Ear infection
     Route: 048
     Dates: start: 20221019, end: 20221026
  10. AMOXICILLIN [Concomitant]
     Active Substance: AMOXICILLIN
     Indication: Sinusitis
  11. AUGMENTIN [Concomitant]
     Active Substance: AMOXICILLIN\CLAVULANATE POTASSIUM
     Indication: Cough
     Route: 048
     Dates: start: 20221105, end: 20221112
  12. PREDNISONE [Concomitant]
     Active Substance: PREDNISONE
     Route: 048
     Dates: start: 20221216, end: 20221228
  13. PREDNISOLONE SODIUM METAZOATE [Concomitant]
     Active Substance: PREDNISOLONE SODIUM METAZOATE
     Route: 048
     Dates: start: 20230106, end: 20230110

REACTIONS (1)
  - NSAID exacerbated respiratory disease [Not Recovered/Not Resolved]

NARRATIVE: CASE EVENT DATE: 20221026
